FAERS Safety Report 5908841-6 (Version None)
Quarter: 2008Q4

REPORT INFORMATION
  Report Type: 
  Country: None (occurrence: None)
  Receive Date: 20081006
  Receipt Date: 20080926
  Transmission Date: 20090506
  Serious: Yes (Other)
  Sender: FDA-Public Use
  Company Number: JP-AVENTIS-200812957JP

PATIENT
  Age: 54 Year
  Sex: Male

DRUGS (6)
  1. LANTUS [Suspect]
     Route: 058
     Dates: start: 20080811, end: 20080916
  2. DETEMIR [Concomitant]
     Dates: end: 20080811
  3. NOVORAPID [Concomitant]
     Dates: end: 20080811
  4. BLOPRESS [Concomitant]
  5. CRESTOR [Concomitant]
  6. HUMALOG [Concomitant]
     Dates: end: 20080916

REACTIONS (1)
  - LIVER FUNCTION TEST ABNORMAL [None]
